FAERS Safety Report 5097231-7 (Version None)
Quarter: 2006Q3

REPORT INFORMATION
  Report Type: 
  Country: None (occurrence: None)
  Receive Date: 20060906
  Receipt Date: 20060825
  Transmission Date: 20061208
  Serious: Yes (Death, Hospitalization)
  Sender: FDA-Public Use
  Company Number: GB-ROCHE-461417

PATIENT
  Age: 34 Year
  Sex: Female

DRUGS (5)
  1. TRETINOIN [Suspect]
     Indication: DRUG USE FOR UNKNOWN INDICATION
     Route: 065
  2. APROTININ [Suspect]
     Indication: DRUG USE FOR UNKNOWN INDICATION
     Route: 065
  3. THIOGUANINE [Concomitant]
     Indication: ACUTE PROMYELOCYTIC LEUKAEMIA
     Route: 065
  4. CYTOSINE ARABINOSIDE [Concomitant]
     Route: 065
  5. DAUNORUBICIN HCL [Concomitant]
     Indication: ACUTE PROMYELOCYTIC LEUKAEMIA
     Route: 065

REACTIONS (12)
  - ACUTE PROMYELOCYTIC LEUKAEMIA [None]
  - CEREBRAL HAEMORRHAGE [None]
  - CEREBRAL INFARCTION [None]
  - EMBOLISM [None]
  - HAEMODIALYSIS [None]
  - HEPATIC INFARCTION [None]
  - PULMONARY INFARCTION [None]
  - RENAL FAILURE [None]
  - RENAL NECROSIS [None]
  - RESPIRATORY FAILURE [None]
  - SPLENIC INFARCTION [None]
  - THERAPY NON-RESPONDER [None]
